FAERS Safety Report 21515539 (Version 2)
Quarter: 2022Q4

REPORT INFORMATION
  Report Type: Spontaneous
  Country: FR (occurrence: FR)
  Receive Date: 20221027
  Receipt Date: 20221101
  Transmission Date: 20230112
  Serious: Yes (Other)
  Sender: FDA-Public Use
  Company Number: None

PATIENT
  Age: 47 Year
  Sex: Male
  Weight: 83 kg

DRUGS (4)
  1. FLUOROURACIL [Suspect]
     Active Substance: FLUOROURACIL
     Indication: Rectal adenocarcinoma
     Dosage: C1, UNIT DOSE: 4800 MG , FREQUENCY TIME : 1 CYCLICAL, THERAPY END DATE : NASK
     Dates: start: 20220701
  2. OXALIPLATIN [Suspect]
     Active Substance: OXALIPLATIN
     Indication: Rectal adenocarcinoma
     Dosage: C1, UNIT DOSE: 170 MG , FREQUENCY TIME : 1 CYCLICAL, THERAPY END DATE : NASK
     Dates: start: 20220701
  3. AMOXICILLIN [Suspect]
     Active Substance: AMOXICILLIN
     Indication: Erysipelas
     Dosage: AMOXICILLINE BASE, DURATION : 7 DAYS
     Dates: start: 20220718, end: 20220725
  4. IRINOTECAN [Suspect]
     Active Substance: IRINOTECAN
     Indication: Rectal adenocarcinoma
     Dosage: C1, UNIT DOSE: 360 MG, FREQUENCY TIME : 1 CYCLICAL, THERAPY END DATE : NASK
     Dates: start: 20220701

REACTIONS (1)
  - Hepatocellular injury [Recovering/Resolving]

NARRATIVE: CASE EVENT DATE: 20220728
